FAERS Safety Report 4859945-0 (Version None)
Quarter: 2005Q4

REPORT INFORMATION
  Report Type: 
  Country: None (occurrence: None)
  Receive Date: 20051219
  Receipt Date: 20051207
  Transmission Date: 20060501
  Serious: Yes (Other)
  Sender: FDA-Public Use
  Company Number: JP-BRISTOL-MYERS SQUIBB COMPANY-13216775

PATIENT
  Age: 56 Year
  Sex: Male

DRUGS (10)
  1. EFAVIRENZ [Suspect]
     Indication: HIV INFECTION
  2. LAMIVUDINE [Suspect]
  3. VIREAD [Suspect]
  4. ZIDOVUDINE [Suspect]
  5. NELFINAVIR MESYLATE [Suspect]
  6. CLOMIPRAMINE [Concomitant]
  7. ADRIAMYCIN [Concomitant]
  8. VINCRISTINE [Concomitant]
  9. PREDNISONE TAB [Concomitant]
  10. FILGRASTIM [Concomitant]

REACTIONS (3)
  - DISSEMINATED LARGE CELL LYMPHOMA [None]
  - LIVER DISORDER [None]
  - WHITE BLOOD CELL COUNT DECREASED [None]
